FAERS Safety Report 6369659-6 (Version None)
Quarter: 2009Q3

REPORT INFORMATION
  Report Type: 
  Country: None (occurrence: None)
  Receive Date: 20090918
  Receipt Date: 20090908
  Transmission Date: 20100115
  Serious: Yes (Other)
  Sender: FDA-Public Use
  Company Number: CCC09-220

PATIENT
  Sex: Male

DRUGS (1)
  1. EPINEPHRINE [Suspect]
     Indication: ASTHMA
     Dosage: 22 MG X 2, PRN ORAL
     Route: 048

REACTIONS (1)
  - DRUG INEFFECTIVE [None]
